FAERS Safety Report 4998720-3 (Version None)
Quarter: 2006Q2

REPORT INFORMATION
  Report Type: 
  Country: None (occurrence: None)
  Receive Date: 20060510
  Receipt Date: 20060509
  Transmission Date: 20061013
  Serious: Yes (Hospitalization)
  Sender: FDA-Public Use
  Company Number: AU-BOEHRINGER INGELHEIM PHARMACEUTICALS, INC.-2006-BP-05221AU

PATIENT
  Age: 48 Year
  Sex: Female

DRUGS (15)
  1. MOBIC [Suspect]
     Route: 048
     Dates: end: 20050809
  2. METHOTREXATE [Suspect]
     Route: 048
     Dates: end: 20050809
  3. ALPRAZOLAM [Suspect]
     Route: 048
     Dates: end: 20050809
  4. ARAVA [Suspect]
     Route: 048
     Dates: start: 20050112, end: 20050809
  5. ZYPREXA [Suspect]
     Route: 048
     Dates: end: 20050809
  6. PLAQUENIL [Suspect]
     Route: 048
     Dates: start: 20011212, end: 20050809
  7. ARTANE [Suspect]
     Route: 048
     Dates: end: 20050809
  8. EFFEXOR [Suspect]
     Route: 048
     Dates: end: 20050809
  9. KLACID [Suspect]
     Route: 048
     Dates: start: 20050731, end: 20050809
  10. FOLIC ACID [Concomitant]
  11. CENTRUM [Concomitant]
  12. OSTELIN 1000 (ERGOCALCIFEROL) [Concomitant]
  13. NEXIUM [Concomitant]
  14. MONOPLUS [Concomitant]
  15. AMOXIL [Concomitant]

REACTIONS (1)
  - HEPATITIS FULMINANT [None]
